FAERS Safety Report 20833757 (Version 1)
Quarter: 2022Q2

REPORT INFORMATION
  Report Type: Spontaneous
  Country: DE (occurrence: DE)
  Receive Date: 20220516
  Receipt Date: 20220516
  Transmission Date: 20220721
  Serious: Yes (Other)
  Sender: FDA-Public Use
  Company Number: DE-UCBSA-2022022975

PATIENT
  Age: 10 Year
  Sex: Female

DRUGS (15)
  1. OXCARBAZEPINE [Suspect]
     Active Substance: OXCARBAZEPINE
     Indication: Status epilepticus
     Dosage: UNK
  2. OXCARBAZEPINE [Suspect]
     Active Substance: OXCARBAZEPINE
     Indication: Seizure
  3. TACROLIMUS [Suspect]
     Active Substance: TACROLIMUS
     Indication: Seizure
     Dosage: 0.1 MILLIGRAM/KILOGRAM, QD (0.1 MG/KG/D)
  4. LAMOTRIGINE [Suspect]
     Active Substance: LAMOTRIGINE
     Indication: Seizure
     Dosage: 6 MILLIGRAM/KILOGRAM, QD (6 MG/KG/D)
  5. SULTHIAME [Suspect]
     Active Substance: SULTHIAME
     Indication: Status epilepticus
     Dosage: UNK
  6. SULTHIAME [Suspect]
     Active Substance: SULTHIAME
     Indication: Seizure
  7. VALPROIC ACID [Suspect]
     Active Substance: VALPROIC ACID
     Indication: Seizure
     Dosage: UNK
  8. VALPROIC ACID [Suspect]
     Active Substance: VALPROIC ACID
     Indication: Status epilepticus
  9. PHENYTOIN [Suspect]
     Active Substance: PHENYTOIN
     Indication: Status epilepticus
     Dosage: 4.6 MILLIGRAM/KILOGRAM, QD (4.6 MG/KG/D)
  10. PHENYTOIN [Suspect]
     Active Substance: PHENYTOIN
     Indication: Seizure
  11. CLOBAZAM [Suspect]
     Active Substance: CLOBAZAM
     Indication: Seizure
     Dosage: 0.3 MILLIGRAM/KILOGRAM, QD (0.3 MG/KG/D)
  12. BRIVARACETAM [Suspect]
     Active Substance: BRIVARACETAM
     Indication: Status epilepticus
     Dosage: UNK
  13. BRIVARACETAM [Suspect]
     Active Substance: BRIVARACETAM
     Indication: Seizure
  14. LEVETIRACETAM [Suspect]
     Active Substance: LEVETIRACETAM
     Indication: Seizure
     Dosage: UNK
  15. LEVETIRACETAM [Suspect]
     Active Substance: LEVETIRACETAM
     Indication: Status epilepticus

REACTIONS (5)
  - Status epilepticus [Unknown]
  - Seizure [Recovering/Resolving]
  - Suicidal ideation [Unknown]
  - Multiple-drug resistance [Unknown]
  - Off label use [Unknown]
